FAERS Safety Report 15625035 (Version 1)
Quarter: 2018Q4

REPORT INFORMATION
  Report Type: Spontaneous
  Country: PT (occurrence: PT)
  Receive Date: 20181116
  Receipt Date: 20181116
  Transmission Date: 20190205
  Serious: Yes (Hospitalization, Disabling)
  Sender: FDA-Public Use
  Company Number: PHHY2018PT155295

PATIENT
  Sex: Male

DRUGS (2)
  1. RELMUS [Concomitant]
     Active Substance: THIOCOLCHICOSIDE
     Indication: BACK PAIN
     Dosage: 4 MG, QD
     Route: 030
     Dates: start: 20180901
  2. VOLTAREN [Suspect]
     Active Substance: DICLOFENAC SODIUM
     Indication: BACK PAIN
     Dosage: 75 MG, QD (75MG/3ML)
     Route: 030
     Dates: start: 20180901

REACTIONS (5)
  - Oedema peripheral [Recovering/Resolving]
  - Pain in extremity [Recovering/Resolving]
  - Injection site haematoma [Recovering/Resolving]
  - Injection site ulcer [Recovering/Resolving]
  - Injection site necrosis [Recovering/Resolving]

NARRATIVE: CASE EVENT DATE: 20180903
